FAERS Safety Report 14196843 (Version 1)
Quarter: 2017Q4

REPORT INFORMATION
  Report Type: Spontaneous
  Country: US (occurrence: US)
  Receive Date: 20171116
  Receipt Date: 20171116
  Transmission Date: 20180321
  Serious: No
  Sender: FDA-Public Use
  Company Number: US-SA-2017SA140712

PATIENT
  Age: 62 Year
  Sex: Male

DRUGS (2)
  1. PHOSLO [Concomitant]
     Active Substance: CALCIUM ACETATE
     Route: 065
  2. RENVELA [Suspect]
     Active Substance: SEVELAMER CARBONATE
     Indication: CHRONIC KIDNEY DISEASE
     Dosage: 4 TO 5 TABLETS WITH EACH MEAL?1600MG TO 2000 MG WITH EACH MEAL
     Route: 065
     Dates: start: 2016

REACTIONS (2)
  - Medication residue present [Not Recovered/Not Resolved]
  - Hyperphosphataemia [Unknown]
